FAERS Safety Report 9397207 (Version 1)
Quarter: 2013Q3

REPORT INFORMATION
  Report Type: Spontaneous
  Country: JP (occurrence: JP)
  Receive Date: 20130712
  Receipt Date: 20130712
  Transmission Date: 20140515
  Serious: Yes (Other)
  Sender: FDA-Public Use
  Company Number: JP-JNJFOC-20130300978

PATIENT
  Age: 68 Year
  Sex: Female
  Weight: 43 kg

DRUGS (8)
  1. XARELTO [Suspect]
     Indication: CEREBROVASCULAR ACCIDENT PROPHYLAXIS
     Route: 048
     Dates: start: 20130214
  2. XARELTO [Suspect]
     Indication: ATRIAL FIBRILLATION
     Route: 048
     Dates: start: 20130214
  3. GLIMEPIRIDE [Concomitant]
     Indication: DIABETES MELLITUS
     Route: 050
     Dates: start: 20121213
  4. AVAPRO [Concomitant]
     Indication: HYPERTENSION
     Route: 050
     Dates: start: 20121213
  5. VASOLAN [Concomitant]
     Indication: ATRIAL FIBRILLATION
     Route: 050
     Dates: start: 20121213
  6. DIGOXIN [Concomitant]
     Indication: ATRIAL FIBRILLATION
     Route: 050
     Dates: start: 20121213
  7. ALMYLAR [Concomitant]
     Indication: HYPERTENSION
     Route: 050
     Dates: start: 20121213
  8. ALMYLAR [Concomitant]
     Indication: CARDIAC FAILURE
     Route: 050
     Dates: start: 20121213

REACTIONS (1)
  - Drug-induced liver injury [Recovered/Resolved]
